FAERS Safety Report 10757890 (Version 2)
Quarter: 2015Q1

REPORT INFORMATION
  Report Type: Spontaneous
  Country: AU (occurrence: AU)
  Receive Date: 20150203
  Receipt Date: 20150206
  Transmission Date: 20150721
  Serious: Yes (Other)
  Sender: FDA-Public Use
  Company Number: AU-AMGEN-AUSSP2015007971

PATIENT
  Age: 87 Year
  Sex: Female

DRUGS (12)
  1. FRUSEMIDE                          /00032601/ [Concomitant]
     Active Substance: FUROSEMIDE
     Dosage: UNK UNK, QD
  2. PANAMAX                            /00020001/ [Concomitant]
     Dosage: 1 G, 4 TIMES A DAY
  3. VENTOLIN [Concomitant]
     Active Substance: ALBUTEROL SULFATE
     Dosage: 2 PUFFS, AS NECESSARY
  4. XALATAN [Concomitant]
     Active Substance: LATANOPROST
     Dosage: UNK
  5. CALTRATE                           /00944201/ [Concomitant]
     Dosage: 600 MG, BID
  6. NITROLINGUAL [Concomitant]
     Active Substance: NITROGLYCERIN
     Dosage: UNK
  7. VITAMIN D                          /00107901/ [Concomitant]
     Active Substance: ERGOCALCIFEROL
     Dosage: 25 MG, QD
  8. METOPROLOL [Concomitant]
     Active Substance: METOPROLOL
     Indication: HYPOTENSION
     Dosage: 50 MG, BID
  9. PROLIA [Suspect]
     Active Substance: DENOSUMAB
     Indication: PRODUCT USED FOR UNKNOWN INDICATION
     Dosage: UNK UNK, Q6MO
     Route: 065
     Dates: start: 20141205
  10. BRETARIS GENUAIR [Concomitant]
     Dosage: UNK
  11. VITAMIN B12 [Concomitant]
     Active Substance: CYANOCOBALAMIN
     Dosage: UNK, 3 MONTHLY
  12. CARTIA XT [Concomitant]
     Active Substance: DILTIAZEM HYDROCHLORIDE
     Dosage: UNK UNK, QD

REACTIONS (8)
  - Pancreatitis acute [Unknown]
  - Insomnia [Unknown]
  - Diarrhoea [Not Recovered/Not Resolved]
  - Nausea [Not Recovered/Not Resolved]
  - Hypoaesthesia [Unknown]
  - Back pain [Unknown]
  - Rash [Not Recovered/Not Resolved]
  - Abdominal discomfort [Recovering/Resolving]

NARRATIVE: CASE EVENT DATE: 20141208
